FAERS Safety Report 23241986 (Version 2)
Quarter: 2023Q4

REPORT INFORMATION
  Report Type: Spontaneous
  Country: CA (occurrence: CA)
  Receive Date: 20231129
  Receipt Date: 20231219
  Transmission Date: 20240109
  Serious: Yes (Death, Hospitalization, Other)
  Sender: FDA-Public Use
  Company Number: CA-SANDOZ-SDZ2023CA034648

PATIENT
  Age: 79 Year
  Sex: Male

DRUGS (1)
  1. PIRFENIDONE [Suspect]
     Active Substance: PIRFENIDONE
     Indication: Pulmonary fibrosis
     Dosage: UNK
     Route: 048
     Dates: start: 2019

REACTIONS (7)
  - Cardiac failure congestive [Fatal]
  - Lung cancer metastatic [Fatal]
  - Metastases to spine [Unknown]
  - Pathological fracture [Unknown]
  - Malignant pleural effusion [Unknown]
  - Interstitial lung disease [Unknown]
  - Drug ineffective [Unknown]

NARRATIVE: CASE EVENT DATE: 20231114
